FAERS Safety Report 17320576 (Version 1)
Quarter: 2020Q1

REPORT INFORMATION
  Report Type: Spontaneous
  Country: US (occurrence: US)
  Receive Date: 20200126
  Receipt Date: 20200126
  Transmission Date: 20200409
  Serious: No
  Sender: FDA-Public Use
  Company Number: US-ACORDA-ACO_157204_2019

PATIENT
  Age: 29 Year
  Sex: Male

DRUGS (4)
  1. TECFIDERA [Suspect]
     Active Substance: DIMETHYL FUMARATE
     Indication: MULTIPLE SCLEROSIS
     Dosage: STARTING DOSE 120MG TWICE DAILY
     Route: 048
  2. TYSABRI [Suspect]
     Active Substance: NATALIZUMAB
     Indication: MULTIPLE SCLEROSIS
     Dosage: INFUSED OVER 1 HR 300MG EVERY 4 WEEKS
     Route: 042
     Dates: start: 20180630, end: 20190201
  3. TECFIDERA [Suspect]
     Active Substance: DIMETHYL FUMARATE
     Dosage: MAINTENANCE DOSE OF 240MG TWICE DAILY
     Route: 048
     Dates: start: 20190220
  4. AMPYRA [Suspect]
     Active Substance: DALFAMPRIDINE
     Indication: PRODUCT USED FOR UNKNOWN INDICATION
     Dosage: UNK
     Route: 065

REACTIONS (13)
  - Dysgraphia [Unknown]
  - Aphasia [Unknown]
  - Depressed mood [Recovered/Resolved]
  - Slow speech [Unknown]
  - Balance disorder [Unknown]
  - Hypoaesthesia [Unknown]
  - Gait disturbance [Unknown]
  - Hyperreflexia [Unknown]
  - Fatigue [Unknown]
  - Muscular weakness [Unknown]
  - Paraesthesia [Unknown]
  - Visual impairment [Unknown]
  - Clonus [Unknown]

NARRATIVE: CASE EVENT DATE: 201901
